FAERS Safety Report 7645520-1 (Version None)
Quarter: 2011Q3

REPORT INFORMATION
  Report Type: 
  Country: None (occurrence: None)
  Receive Date: 20110729
  Receipt Date: 20110720
  Transmission Date: 20111222
  Serious: Yes (Hospitalization)
  Sender: FDA-Public Use
  Company Number: US-AMGEN-USASP2011037592

PATIENT
  Age: 57 Year
  Sex: Female

DRUGS (6)
  1. VIDAZA [Concomitant]
     Dosage: 150 MG/M2, UNK
     Route: 042
     Dates: start: 20110523, end: 20110527
  2. CALCIUM ACETATE [Concomitant]
  3. PROCRIT [Suspect]
     Indication: ANAEMIA
     Dosage: 20000 IU, UNK
     Route: 058
     Dates: start: 20110520, end: 20110531
  4. VITAMIN D [Concomitant]
  5. FISH OIL [Concomitant]
  6. PROGESTERONE [Concomitant]

REACTIONS (3)
  - PLATELET COUNT DECREASED [None]
  - LEUKOCYTOCLASTIC VASCULITIS [None]
  - PETECHIAE [None]
